FAERS Safety Report 5691425-5 (Version None)
Quarter: 2008Q2

REPORT INFORMATION
  Report Type: 
  Country: None (occurrence: None)
  Receive Date: 20080401
  Receipt Date: 20080401
  Transmission Date: 20081010
  Serious: Yes (Hospitalization)
  Sender: FDA-Public Use
  Company Number: None

PATIENT
  Age: 89 Year
  Sex: Male
  Weight: 69.6 kg

DRUGS (1)
  1. WARFARIN SODIUM [Suspect]
     Indication: ARTERIAL THROMBOSIS
     Dosage: EVERY DAY PO
     Route: 048
     Dates: start: 20071231, end: 20080107

REACTIONS (4)
  - ANAEMIA [None]
  - GASTRIC HAEMORRHAGE [None]
  - INTERNATIONAL NORMALISED RATIO INCREASED [None]
  - RETROPERITONEAL HAEMORRHAGE [None]
